FAERS Safety Report 5283127-4 (Version None)
Quarter: 2007Q2

REPORT INFORMATION
  Report Type: 
  Country: None (occurrence: None)
  Receive Date: 20070402
  Receipt Date: 20070322
  Transmission Date: 20071010
  Serious: Yes (Other)
  Sender: FDA-Public Use
  Company Number: US-ROCHE-489030

PATIENT
  Sex: Male
  Weight: 72.6 kg

DRUGS (4)
  1. FUZEON [Suspect]
     Route: 058
     Dates: start: 20051115
  2. PREZISTA [Concomitant]
     Route: 065
  3. TRUVADA [Concomitant]
  4. ZIAGEN [Concomitant]

REACTIONS (2)
  - INJECTION SITE REACTION [None]
  - LIPODYSTROPHY ACQUIRED [None]
